FAERS Safety Report 5032829-3 (Version None)
Quarter: 2006Q2

REPORT INFORMATION
  Report Type: 
  Country: None (occurrence: None)
  Receive Date: 20060428
  Receipt Date: 20060207
  Transmission Date: 20061013
  Serious: Yes (Other)
  Sender: FDA-Public Use
  Company Number: 200512024BBE

PATIENT
  Age: 48 Year
  Sex: Female
  Weight: 92.9874 kg

DRUGS (5)
  1. GAMUNEX [Suspect]
     Indication: MULTIPLE SCLEROSIS RELAPSE
     Dosage: INTRAVENOUS
     Route: 042
     Dates: start: 20051208, end: 20051209
  2. ZOLPIDEM TARTRATE [Concomitant]
  3. AMINOPYRINE [Concomitant]
  4. NALTREXONE [Concomitant]
  5. VENEX [Concomitant]

REACTIONS (4)
  - ANAEMIA [None]
  - ASTHENIA [None]
  - CHROMATURIA [None]
  - HAEMOLYSIS [None]
